FAERS Safety Report 6193093-5 (Version None)
Quarter: 2009Q2

REPORT INFORMATION
  Report Type: 
  Country: None (occurrence: None)
  Receive Date: 20090514
  Receipt Date: 20090514
  Transmission Date: 20091009
  Serious: Yes (Life-Threatening)
  Sender: FDA-Public Use
  Company Number: None

PATIENT
  Age: 43 Year
  Sex: Female

DRUGS (1)
  1. ZONEGRAN [Suspect]
     Indication: CONVULSION
     Dosage: 300 MG QHS PO
     Route: 048
     Dates: start: 20040420, end: 20090305

REACTIONS (9)
  - ALOPECIA [None]
  - ANAEMIA [None]
  - CONDITION AGGRAVATED [None]
  - CONTUSION [None]
  - GINGIVAL BLEEDING [None]
  - HAEMOLYTIC ANAEMIA [None]
  - HAEMORRHAGE [None]
  - THROMBOCYTOPENIA [None]
  - WEIGHT INCREASED [None]
